FAERS Safety Report 9110373 (Version 1)
Quarter: 2013Q1

REPORT INFORMATION
  Report Type: Spontaneous
  Country: US (occurrence: US)
  Receive Date: 20130219
  Receipt Date: 20130219
  Transmission Date: 20140127
  Serious: No
  Sender: FDA-Public Use
  Company Number: US-BRISTOL-MYERS SQUIBB COMPANY-16577488

PATIENT
  Sex: Female
  Weight: 149.66 kg

DRUGS (5)
  1. ORENCIA [Suspect]
     Route: 042
  2. HUMULIN [Concomitant]
  3. GABAPENTIN [Concomitant]
  4. VICODIN [Concomitant]
  5. SIMVASTATIN [Concomitant]

REACTIONS (1)
  - Pain in extremity [Unknown]
